FAERS Safety Report 20615908 (Version 2)
Quarter: 2022Q2

REPORT INFORMATION
  Report Type: Report from Study
  Country: UY (occurrence: UY)
  Receive Date: 20220321
  Receipt Date: 20220422
  Transmission Date: 20220720
  Serious: Yes (Other)
  Sender: FDA-Public Use
  Company Number: UY-ABBVIE-22K-168-4323297-00

PATIENT
  Sex: Female

DRUGS (1)
  1. HUMIRA [Suspect]
     Active Substance: ADALIMUMAB
     Indication: Ankylosing spondylitis
     Route: 058
     Dates: start: 20150927

REACTIONS (18)
  - Breast mass [Unknown]
  - Haemorrhage [Unknown]
  - Uterine leiomyoma [Not Recovered/Not Resolved]
  - Somnolence [Unknown]
  - Heavy menstrual bleeding [Unknown]
  - Scoliosis [Unknown]
  - Retinal oedema [Unknown]
  - Colour blindness acquired [Unknown]
  - Anaemia [Unknown]
  - Arthritis [Not Recovered/Not Resolved]
  - Pelvic pain [Not Recovered/Not Resolved]
  - Diarrhoea [Recovered/Resolved]
  - Headache [Unknown]
  - COVID-19 [Unknown]
  - Ankylosing spondylitis [Not Recovered/Not Resolved]
  - Pyrexia [Unknown]
  - Myalgia [Unknown]
  - Arthralgia [Not Recovered/Not Resolved]
